FAERS Safety Report 22137558 (Version 2)
Quarter: 2023Q2

REPORT INFORMATION
  Report Type: Spontaneous
  Country: US (occurrence: US)
  Receive Date: 20230325
  Receipt Date: 20230406
  Transmission Date: 20230722
  Serious: Yes (Hospitalization, Other)
  Sender: FDA-Public Use
  Company Number: US-MLMSERVICE-20230309-4153281-1

PATIENT
  Age: 90 Year
  Sex: Male

DRUGS (1)
  1. AMIODARONE HYDROCHLORIDE [Suspect]
     Active Substance: AMIODARONE HYDROCHLORIDE
     Indication: Atrial fibrillation
     Dosage: 200 MILLIGRAM, TWO TIMES A DAY (FIVE MONTHS PRIOR)
     Route: 065

REACTIONS (3)
  - Cardiac failure acute [Recovering/Resolving]
  - Myxoedema coma [Recovering/Resolving]
  - Respiratory failure [Recovering/Resolving]
